FAERS Safety Report 14672444 (Version 5)
Quarter: 2019Q1

REPORT INFORMATION
  Report Type: Spontaneous
  Country: US (occurrence: US)
  Receive Date: 20180323
  Receipt Date: 20190221
  Transmission Date: 20190417
  Serious: Yes (Hospitalization, Other)
  Sender: FDA-Public Use
  Company Number: US-ASTRAZENECA-2018SE33763

PATIENT
  Age: 21609 Day
  Sex: Female
  Weight: 76.2 kg

DRUGS (47)
  1. ONDANSETRON [Concomitant]
     Active Substance: ONDANSETRON
     Dates: start: 20140615
  2. LISINOPRIL. [Concomitant]
     Active Substance: LISINOPRIL
     Dates: start: 20090305
  3. AMITRIPTYLINE [Concomitant]
     Active Substance: AMITRIPTYLINE
     Indication: DEPRESSION
     Dates: start: 2011, end: 2012
  4. FLUTICASONE. [Concomitant]
     Active Substance: FLUTICASONE
  5. DILTIAZEM. [Concomitant]
     Active Substance: DILTIAZEM
  6. ZYRTEC [Concomitant]
     Active Substance: CETIRIZINE HYDROCHLORIDE
     Dates: start: 20061124
  7. PRAVACHOL [Concomitant]
     Active Substance: PRAVASTATIN SODIUM
  8. MICARDIS [Concomitant]
     Active Substance: TELMISARTAN
     Dates: start: 20131008
  9. NADOLOL. [Concomitant]
     Active Substance: NADOLOL
     Dates: start: 19970401
  10. PEPCID [Concomitant]
     Active Substance: FAMOTIDINE
  11. METAMUCIL [Concomitant]
     Active Substance: PLANTAGO SEED
     Dosage: 3.4 GRAM/12 GRAM
  12. VALACICLOVIR [Concomitant]
     Active Substance: VALACYCLOVIR HYDROCHLORIDE
  13. MECLIZINE [Concomitant]
     Active Substance: MECLIZINE HYDROCHLORIDE
     Route: 048
     Dates: start: 20160818
  14. HYDROCODONE-HOMATROPINE [Concomitant]
     Dosage: 5 MG-1.5 MG/5 ML
  15. ONDANSETRON HYDROCHLORIDE. [Concomitant]
     Active Substance: ONDANSETRON HYDROCHLORIDE
     Dosage: 8 MG
  16. LANSOPRAZOLE. [Suspect]
     Active Substance: LANSOPRAZOLE
     Indication: GASTROOESOPHAGEAL REFLUX DISEASE
     Route: 065
     Dates: start: 20140615
  17. CARDURA [Concomitant]
     Active Substance: DOXAZOSIN MESYLATE
     Indication: HYPERTENSION
     Route: 048
     Dates: start: 20131220
  18. PRAVASTATIN SODIUM. [Concomitant]
     Active Substance: PRAVASTATIN SODIUM
     Indication: BLOOD CHOLESTEROL INCREASED
     Route: 048
     Dates: start: 20131008, end: 20150601
  19. LASIX [Concomitant]
     Active Substance: FUROSEMIDE
     Dates: start: 20131008
  20. DILTIAZEM HYDROCHLORIDE. [Concomitant]
     Active Substance: DILTIAZEM HYDROCHLORIDE
     Dates: start: 20131008
  21. CYCLOBENZAPRINE. [Concomitant]
     Active Substance: CYCLOBENZAPRINE
     Dates: start: 20140506
  22. TRAMADOL HCL/ULTRAM [Concomitant]
  23. ASPIRIN. [Concomitant]
     Active Substance: ASPIRIN
     Dates: start: 20180827
  24. SEPTRA [Concomitant]
     Active Substance: SULFAMETHOXAZOLE\TRIMETHOPRIM
     Dosage: 800 MG
  25. VITAMIN D [Concomitant]
     Active Substance: CHOLECALCIFEROL
  26. AMLODIPINE BESYLATE. [Concomitant]
     Active Substance: AMLODIPINE BESYLATE
  27. NEXIUM [Suspect]
     Active Substance: ESOMEPRAZOLE MAGNESIUM
     Indication: GASTROOESOPHAGEAL REFLUX DISEASE
     Route: 048
     Dates: start: 2011, end: 2014
  28. NEXIUM [Suspect]
     Active Substance: ESOMEPRAZOLE MAGNESIUM
     Indication: GASTROOESOPHAGEAL REFLUX DISEASE
     Dosage: ONCE DAILY AT LEAST 1 HOUR BEFORE A MEAL SWALLOWING WHOLE.DO NOT CRUSH OR CHEW GRANULES
     Route: 048
     Dates: start: 20131220
  29. NEXIUM [Suspect]
     Active Substance: ESOMEPRAZOLE MAGNESIUM
     Indication: GASTROOESOPHAGEAL REFLUX DISEASE
     Route: 048
  30. LANSOPRAZOLE. [Suspect]
     Active Substance: LANSOPRAZOLE
     Indication: GASTROOESOPHAGEAL REFLUX DISEASE
     Route: 065
     Dates: start: 201406
  31. CYLERT [Concomitant]
     Active Substance: PEMOLINE
     Dates: start: 19970401
  32. NAPROXEN. [Concomitant]
     Active Substance: NAPROXEN
     Dates: start: 20090404
  33. SEPTRA [Concomitant]
     Active Substance: SULFAMETHOXAZOLE\TRIMETHOPRIM
     Dates: start: 19980826
  34. NEXIUM [Suspect]
     Active Substance: ESOMEPRAZOLE MAGNESIUM
     Indication: GASTROOESOPHAGEAL REFLUX DISEASE
     Route: 048
     Dates: start: 20111202
  35. NEXIUM [Suspect]
     Active Substance: ESOMEPRAZOLE MAGNESIUM
     Indication: GASTROOESOPHAGEAL REFLUX DISEASE
     Route: 048
     Dates: start: 20121009
  36. TESSALON [Concomitant]
     Active Substance: BENZONATATE
     Dates: start: 20181116
  37. HYDROCODONE-ACETAMINOPHEN [Concomitant]
     Active Substance: ACETAMINOPHEN\HYDROCODONE
  38. ATENOLOL. [Concomitant]
     Active Substance: ATENOLOL
     Dosage: TAKE 1/2 TABLET BY MOUTH EVERY DAY
     Dates: start: 20010307
  39. BIAXIN [Concomitant]
     Active Substance: CLARITHROMYCIN
  40. FUROSEMIDE. [Concomitant]
     Active Substance: FUROSEMIDE
  41. NEXIUM [Suspect]
     Active Substance: ESOMEPRAZOLE MAGNESIUM
     Indication: GASTROOESOPHAGEAL REFLUX DISEASE
     Route: 048
     Dates: start: 201112, end: 201407
  42. TRAMADOL HCL/ULTRAM [Concomitant]
     Dates: start: 20140506
  43. MELOXICAM. [Concomitant]
     Active Substance: MELOXICAM
     Indication: ARTHRITIS
     Dates: start: 2011, end: 2012
  44. METRONIDAZOLE. [Concomitant]
     Active Substance: METRONIDAZOLE
  45. CIPROFLOXACIN HYDROCHLORIDE. [Concomitant]
     Active Substance: CIPROFLOXACIN HYDROCHLORIDE
  46. DIFLUCAN [Concomitant]
     Active Substance: FLUCONAZOLE
     Dosage: 150 MG
  47. ESTRACE [Concomitant]
     Active Substance: ESTRADIOL
     Dosage: 0.01 %

REACTIONS (4)
  - Acute kidney injury [Unknown]
  - Secondary hypertension [Unknown]
  - Chronic kidney disease [Not Recovered/Not Resolved]
  - Nephropathy [Unknown]

NARRATIVE: CASE EVENT DATE: 20150601
